FAERS Safety Report 6462072-2 (Version None)
Quarter: 2009Q4

REPORT INFORMATION
  Report Type: 
  Country: None (occurrence: None)
  Receive Date: 20091130
  Receipt Date: 20090127
  Transmission Date: 20100525
  Serious: Yes (Other)
  Sender: FDA-Public Use
  Company Number: US-SANOFI-AVENTIS-A03200900363

PATIENT
  Age: 65 Year
  Sex: Male

DRUGS (9)
  1. CLOPIDOGREL BISULFATE [Suspect]
     Indication: STENT PLACEMENT
     Dosage: UNIT DOSE: 75 MG
     Route: 048
     Dates: start: 20051001, end: 20061001
  2. CLOPIDOGREL BISULFATE [Suspect]
     Dosage: UNIT DOSE: 75 MG
     Route: 048
     Dates: start: 20061001, end: 20061001
  3. CLOPIDOGREL BISULFATE [Suspect]
     Dosage: UNIT DOSE: 75 MG
     Route: 048
     Dates: start: 20061001
  4. ASPIRIN [Concomitant]
     Route: 065
     Dates: start: 20051001
  5. GLYBURIDE [Concomitant]
     Route: 065
  6. METFORMIN HCL [Concomitant]
     Indication: DRUG USE FOR UNKNOWN INDICATION
     Route: 065
  7. LISINOPRIL [Concomitant]
     Indication: DRUG USE FOR UNKNOWN INDICATION
     Route: 065
  8. SIMVASTATIN [Concomitant]
     Indication: DRUG USE FOR UNKNOWN INDICATION
     Route: 065
  9. COREG [Concomitant]
     Route: 065
     Dates: start: 20060301, end: 20080101

REACTIONS (7)
  - AMNESIA [None]
  - CAROTID ARTERY OCCLUSION [None]
  - DIZZINESS [None]
  - GAIT DISTURBANCE [None]
  - INTENTIONAL DRUG MISUSE [None]
  - MYOCARDIAL INFARCTION [None]
  - OVERDOSE [None]
